FAERS Safety Report 8764655 (Version 1)
Quarter: 2012Q4

REPORT INFORMATION
  Report Type: 
  Country: US (occurrence: US)
  Receive Date: 20120831
  Receipt Date: 20120831
  Transmission Date: 20130627
  Serious: Yes (Death, Hospitalization)
  Sender: FDA-Public Use
  Company Number: US-FRI-1000038244

PATIENT
  Age: 63 Year
  Sex: Female

DRUGS (7)
  1. DALIRESP [Suspect]
     Indication: CHRONIC OBSTRUCTIVE PULMONARY DISEASE
     Dosage: 500 mcg
     Route: 048
     Dates: start: 201203, end: 2012
  2. PREDNISONE [Concomitant]
     Indication: CHRONIC OBSTRUCTIVE PULMONARY DISEASE
  3. INSULIN [Concomitant]
     Indication: DIABETES MELLITUS
  4. METFORMIN [Concomitant]
     Indication: DIABETES MELLITUS
  5. DILTIAZEM [Concomitant]
  6. FLUCONAZOLE [Concomitant]
  7. CLOTRIMAZOLE [Concomitant]

REACTIONS (3)
  - Chronic obstructive pulmonary disease [Fatal]
  - Acute respiratory failure [Fatal]
  - Diarrhoea [Unknown]
